FAERS Safety Report 6430391-1 (Version None)
Quarter: 2009Q4

REPORT INFORMATION
  Report Type: 
  Country: None (occurrence: None)
  Receive Date: 20091106
  Receipt Date: 20091026
  Transmission Date: 20100525
  Serious: Yes (Other)
  Sender: FDA-Public Use
  Company Number: US-PFIZER INC-2009275058

PATIENT

DRUGS (2)
  1. ZITHROMAX [Suspect]
     Indication: STAPHYLOCOCCAL INFECTION
     Dosage: 500 MG, UNK
  2. ZITHROMAX [Suspect]
     Dosage: 250 MG, UNK

REACTIONS (2)
  - STAPHYLOCOCCAL ABSCESS [None]
  - STAPHYLOCOCCAL INFECTION [None]
